FAERS Safety Report 16754625 (Version 1)
Quarter: 2019Q4

REPORT INFORMATION
  Report Type: Spontaneous
  Country: US (occurrence: US)
  Receive Date: 20190828
  Receipt Date: 20190828
  Transmission Date: 20200122
  Serious: Yes (Disabling)
  Sender: FDA-Public Use
  Company Number: None

PATIENT
  Age: 43 Year
  Sex: Female
  Weight: 57.15 kg

DRUGS (1)
  1. DESONIDE. [Suspect]
     Active Substance: DESONIDE
     Indication: ECZEMA
     Dates: start: 20140815, end: 20150120

REACTIONS (6)
  - Drug dependence [None]
  - Infection [None]
  - Eczema [None]
  - Drug withdrawal syndrome [None]
  - Wound secretion [None]
  - Swelling [None]

NARRATIVE: CASE EVENT DATE: 20150120
